FAERS Safety Report 5115009-2 (Version None)
Quarter: 2006Q3

REPORT INFORMATION
  Report Type: 
  Country: None (occurrence: None)
  Receive Date: 20060926
  Receipt Date: 20060914
  Transmission Date: 20061208
  Serious: Yes (Other)
  Sender: FDA-Public Use
  Company Number: SE-BRISTOL-MYERS SQUIBB COMPANY-13519426

PATIENT
  Age: 65 Year
  Sex: Female

DRUGS (11)
  1. HOLOXAN [Suspect]
     Indication: NEOPLASM MALIGNANT
     Dates: start: 20060707, end: 20060707
  2. ETOPOSIDE [Concomitant]
  3. ALVEDON [Concomitant]
  4. BEHEPAN [Concomitant]
  5. UROMITEXAN INJ [Concomitant]
  6. LACTULOSE [Concomitant]
  7. KYTRIL [Concomitant]
  8. FLUCONAZOLE [Concomitant]
  9. MITOGUAZONE [Concomitant]
  10. METHOTREXATE [Concomitant]
  11. DEXTROPROPOXIFEN [Concomitant]

REACTIONS (2)
  - CARDIAC FAILURE [None]
  - HYPONATRAEMIA [None]
